FAERS Safety Report 21661258 (Version 2)
Quarter: 2022Q4

REPORT INFORMATION
  Report Type: Spontaneous
  Country: CN (occurrence: CN)
  Receive Date: 20221130
  Receipt Date: 20221220
  Transmission Date: 20230112
  Serious: Yes (Hospitalization, Other)
  Sender: FDA-Public Use
  Company Number: CN-SUN PHARMACEUTICAL INDUSTRIES LTD-2022R1-366226

PATIENT
  Age: 60 Year
  Sex: Male

DRUGS (5)
  1. METOPROLOL [Suspect]
     Active Substance: METOPROLOL
     Indication: Hypertension
     Dosage: 12.5 MILLIGRAM, BID
     Route: 065
  2. DACOMITINIB [Interacting]
     Active Substance: DACOMITINIB
     Indication: Non-small cell lung cancer
     Dosage: UNK
     Route: 065
  3. LEVAMLODIPINE MALEATE [Concomitant]
     Active Substance: LEVAMLODIPINE MALEATE
     Indication: Hypertension
  4. METFORMIN HYDROCHLORIDE [Suspect]
     Active Substance: METFORMIN HYDROCHLORIDE
     Indication: Hypertension
  5. ACARBOSE [Suspect]
     Active Substance: ACARBOSE
     Indication: Hypertension

REACTIONS (4)
  - Drug interaction [Unknown]
  - Heart rate decreased [Recovered/Resolved]
  - Blood pressure systolic decreased [Recovered/Resolved]
  - Liver injury [Recovering/Resolving]
